FAERS Safety Report 5786017-3 (Version None)
Quarter: 2008Q2

REPORT INFORMATION
  Report Type: 
  Country: None (occurrence: None)
  Receive Date: 20080624
  Receipt Date: 20080619
  Transmission Date: 20081010
  Serious: Yes (Hospitalization)
  Sender: FDA-Public Use
  Company Number: FR-WYE-G01729508

PATIENT
  Sex: Male

DRUGS (3)
  1. ADVIL [Suspect]
     Indication: MIGRAINE
     Route: 048
     Dates: start: 20080605, end: 20080617
  2. PERFALGAN [Suspect]
     Indication: MIGRAINE
     Dosage: ONE INFUSION
     Route: 042
     Dates: start: 20080601, end: 20080601
  3. CARDIAC THERAPY [Suspect]
     Indication: HYPERTENSION
     Dosage: UNKNOWN
     Route: 048
     Dates: start: 20080610

REACTIONS (1)
  - TRANSAMINASES INCREASED [None]
